FAERS Safety Report 8499725-0 (Version None)
Quarter: 2012Q3

REPORT INFORMATION
  Report Type: 
  Country: None (occurrence: None)
  Receive Date: 20120710
  Receipt Date: 20120705
  Transmission Date: 20120928
  Serious: Yes (Death)
  Sender: FDA-Public Use
  Company Number: AT-JNJFOC-20120606569

PATIENT
  Sex: Male

DRUGS (3)
  1. ASPIRIN [Concomitant]
     Route: 065
  2. PALIPERIDONE [Suspect]
     Indication: SCHIZOPHRENIA, PARANOID TYPE
     Route: 030
  3. BENZODIAZEPINE NOS [Concomitant]
     Route: 065

REACTIONS (2)
  - COMPLETED SUICIDE [None]
  - INCORRECT DOSE ADMINISTERED [None]
